FAERS Safety Report 8013716-5 (Version None)
Quarter: 2011Q4

REPORT INFORMATION
  Report Type: 
  Country: None (occurrence: None)
  Receive Date: 20111229
  Receipt Date: 20111219
  Transmission Date: 20120403
  Serious: Yes (Death)
  Sender: FDA-Public Use
  Company Number: FI-ELI_LILLY_AND_COMPANY-FI201112005359

PATIENT
  Sex: Male

DRUGS (11)
  1. PANTOPRAZOLE [Concomitant]
     Indication: GASTRIC DISORDER
     Dosage: 40 MG, QD
  2. AZAMUN [Concomitant]
     Indication: IMMUNOSUPPRESSION
  3. PREDNISOLONE [Concomitant]
     Indication: IMMUNOSUPPRESSION
     Dosage: 5 MG, QD
  4. INSULIN [Concomitant]
     Indication: DIABETES MELLITUS
  5. RAMIPRIL [Concomitant]
     Indication: VASODILATION PROCEDURE
  6. ACETAMINOPHEN [Concomitant]
     Indication: PAIN
  7. CRAMPITON [Concomitant]
     Indication: MUSCLE SPASMS
  8. ZOLPIDEM TARTRATE [Concomitant]
     Indication: SLEEP DISORDER
     Dosage: 10 MG, UNK
  9. FORTEO [Suspect]
     Indication: OSTEOPOROSIS
     Dosage: 20 UG, QD
     Route: 058
     Dates: start: 20110713
  10. XALATAN [Concomitant]
     Indication: GLAUCOMA
  11. CALCICHEW D3 [Concomitant]
     Indication: VITAMIN SUPPLEMENTATION
     Dosage: UNK

REACTIONS (1)
  - DEATH [None]
